FAERS Safety Report 15790896 (Version 2)
Quarter: 2019Q1

REPORT INFORMATION
  Report Type: Spontaneous
  Country: US (occurrence: US)
  Receive Date: 20190104
  Receipt Date: 20190128
  Transmission Date: 20190417
  Serious: No
  Sender: FDA-Public Use
  Company Number: US-ACTELION-A-NJ2018-183882

PATIENT
  Age: 76 Year
  Sex: Female
  Weight: 49.89 kg

DRUGS (3)
  1. OPSUMIT [Suspect]
     Active Substance: MACITENTAN
     Indication: PULMONARY ARTERIAL HYPERTENSION
     Dosage: 10 MG, QD
     Route: 048
  2. AMLODIPINE [Concomitant]
     Active Substance: AMLODIPINE BESYLATE
  3. UPTRAVI [Interacting]
     Active Substance: SELEXIPAG
     Indication: PULMONARY ARTERIAL HYPERTENSION
     Dosage: 200 MCG, BID
     Route: 048
     Dates: start: 20181206

REACTIONS (7)
  - Malaise [Recovered/Resolved]
  - Headache [Unknown]
  - Rhinitis allergic [Unknown]
  - Asthenia [Unknown]
  - Insomnia [Unknown]
  - Drug interaction [Recovered/Resolved]
  - Decreased appetite [Unknown]
